FAERS Safety Report 25259322 (Version 2)
Quarter: 2025Q2

REPORT INFORMATION
  Report Type: Spontaneous
  Country: FR (occurrence: FR)
  Receive Date: 20250501
  Receipt Date: 20250619
  Transmission Date: 20250716
  Serious: Yes (Hospitalization, Other)
  Sender: AUROBINDO
  Company Number: FR-AFSSAPS-TO2025000626

PATIENT
  Age: 61 Year
  Sex: Female
  Weight: 93 kg

DRUGS (19)
  1. FLUOXETINE [Suspect]
     Active Substance: FLUOXETINE HYDROCHLORIDE
     Indication: Depression
     Dosage: 20 MILLIGRAM, ONCE A DAY
     Route: 048
     Dates: start: 20250324, end: 20250404
  2. FLUOXETINE HYDROCHLORIDE [Suspect]
     Active Substance: FLUOXETINE HYDROCHLORIDE
     Indication: Depression
     Dosage: 20 MILLIGRAM, ONCE A DAY
     Route: 048
     Dates: end: 20250407
  3. PANTOPRAZOLE [Suspect]
     Active Substance: PANTOPRAZOLE
     Indication: Gastrooesophageal reflux disease
     Dosage: 40 MILLIGRAM, ONCE A DAY
     Route: 048
     Dates: start: 20250401, end: 20250407
  4. OXYCODONE HYDROCHLORIDE [Suspect]
     Active Substance: OXYCODONE HYDROCHLORIDE
     Indication: Procedural pain
     Dosage: 5 MILLIGRAM, ONCE A DAY
     Route: 048
     Dates: start: 20250327, end: 20250409
  5. CINCHONIDINE\CINCHONINE\QUINIDINE\QUININE [Suspect]
     Active Substance: CINCHONIDINE\CINCHONINE\QUINIDINE\QUININE
     Indication: Restless legs syndrome
     Dosage: 500 MILLIGRAM, ONCE A DAY (0.5CP 2/JOURLONG COURS)
     Route: 048
     Dates: end: 20250409
  6. METFORMIN\SITAGLIPTIN [Suspect]
     Active Substance: METFORMIN\SITAGLIPTIN
     Indication: Type 2 diabetes mellitus
     Dosage: 2 DOSAGE FORM, ONCE A DAY
     Route: 048
     Dates: start: 20250407
  7. OXYCODONE HYDROCHLORIDE [Concomitant]
     Active Substance: OXYCODONE HYDROCHLORIDE
     Indication: Product used for unknown indication
     Route: 065
  8. DAPAGLIFLOZIN [Concomitant]
     Active Substance: DAPAGLIFLOZIN
     Indication: Product used for unknown indication
     Route: 065
  9. TOUJEO [Concomitant]
     Active Substance: INSULIN GLARGINE
     Indication: Product used for unknown indication
     Route: 065
  10. NEBIVOLOL [Concomitant]
     Active Substance: NEBIVOLOL
     Indication: Product used for unknown indication
     Route: 065
  11. HYDROCHLOROTHIAZIDE\IRBESARTAN [Concomitant]
     Active Substance: HYDROCHLOROTHIAZIDE\IRBESARTAN
     Indication: Product used for unknown indication
     Route: 065
  12. ROSUVASTATIN [Concomitant]
     Active Substance: ROSUVASTATIN
     Indication: Product used for unknown indication
     Route: 065
  13. LEVOTHYROXINE [Concomitant]
     Active Substance: LEVOTHYROXINE
     Indication: Product used for unknown indication
     Route: 065
  14. BILASTINE [Concomitant]
     Active Substance: BILASTINE
     Indication: Product used for unknown indication
     Route: 065
  15. ZOLMITRIPTAN [Concomitant]
     Active Substance: ZOLMITRIPTAN
     Indication: Product used for unknown indication
     Route: 065
  16. PIZOTYLINE [Concomitant]
     Active Substance: PIZOTYLINE
     Indication: Product used for unknown indication
     Route: 065
  17. PRAMIPEXOLE [Concomitant]
     Active Substance: PRAMIPEXOLE
     Indication: Product used for unknown indication
     Route: 065
  18. ALPRAZOLAM [Concomitant]
     Active Substance: ALPRAZOLAM
     Indication: Product used for unknown indication
     Route: 065
  19. ESOMEPRAZOLE [Concomitant]
     Active Substance: ESOMEPRAZOLE
     Indication: Product used for unknown indication
     Route: 065

REACTIONS (1)
  - Agranulocytosis [Recovered/Resolved]

NARRATIVE: CASE EVENT DATE: 20250404
